FAERS Safety Report 10189585 (Version 1)
Quarter: 2014Q2

REPORT INFORMATION
  Report Type: Spontaneous
  Country: US (occurrence: US)
  Receive Date: 20140522
  Receipt Date: 20140522
  Transmission Date: 20141212
  Serious: Yes (Death)
  Sender: FDA-Public Use
  Company Number: US-FRI-1000067460

PATIENT
  Age: 64 Year
  Sex: Female
  Weight: 50 kg

DRUGS (2)
  1. NAMENDA XR [Suspect]
     Indication: DEMENTIA
     Dosage: 28MG
     Route: 048
  2. NAMENDA [Suspect]
     Indication: DEMENTIA
     Dosage: 10MG
     Route: 048

REACTIONS (5)
  - Death [Fatal]
  - Diet refusal [Unknown]
  - Rash [Unknown]
  - Insomnia [Unknown]
  - Weight increased [Unknown]
